FAERS Safety Report 6139867-8 (Version None)
Quarter: 2009Q1

REPORT INFORMATION
  Report Type: 
  Country: None (occurrence: None)
  Receive Date: 20090331
  Receipt Date: 20090331
  Transmission Date: 20090719
  Serious: No
  Sender: FDA-Public Use
  Company Number: None

PATIENT
  Age: 73 Year
  Sex: Male
  Weight: 79.38 kg

DRUGS (1)
  1. MORPHINE [Suspect]
     Indication: PAIN
     Dosage: MG PRN PO
     Route: 048
     Dates: start: 20090324, end: 20090324

REACTIONS (2)
  - NO THERAPEUTIC RESPONSE [None]
  - PRURITUS ALLERGIC [None]
